FAERS Safety Report 4345227-2 (Version None)
Quarter: 2004Q2

REPORT INFORMATION
  Report Type: 
  Country: None (occurrence: None)
  Receive Date: 20040423
  Receipt Date: 20040414
  Transmission Date: 20050107
  Serious: Yes (Other)
  Sender: FDA-Public Use
  Company Number: CH-ROCHE-364314

PATIENT
  Age: 55 Year
  Sex: Male

DRUGS (4)
  1. TICLID [Suspect]
     Indication: ANGIOPLASTY
     Route: 048
     Dates: start: 20031115, end: 20031215
  2. METOPROLOL SUCCINATE [Concomitant]
     Indication: HYPERTENSION
     Dosage: TAKEN FOR A FEW YEARS.
     Route: 048
  3. ZESTRIL [Concomitant]
     Indication: HYPERTENSION
     Dosage: TAKEN FOR A FEW YEARS.
     Route: 048
  4. PRAVASTATIN SODIUM [Concomitant]
     Indication: HYPERLIPIDAEMIA
     Dosage: TAKEN FOR A FEW YEARS.
     Route: 048

REACTIONS (2)
  - ANXIETY [None]
  - SUICIDAL IDEATION [None]
